FAERS Safety Report 4313008-1 (Version None)
Quarter: 2004Q1

REPORT INFORMATION
  Report Type: 
  Country: None (occurrence: None)
  Receive Date: 20040305
  Receipt Date: 20040305
  Transmission Date: 20041129
  Serious: Yes (Other)
  Sender: FDA-Public Use
  Company Number: None

PATIENT
  Age: 4 Year
  Sex: Male
  Weight: 22.5 kg

DRUGS (1)
  1. KETAMINE HCL [Suspect]

REACTIONS (2)
  - DRUG INEFFECTIVE [None]
  - LARYNGOSPASM [None]
